FAERS Safety Report 5534205-3 (Version None)
Quarter: 2007Q4

REPORT INFORMATION
  Report Type: 
  Country: None (occurrence: None)
  Receive Date: 20071130
  Receipt Date: 20071115
  Transmission Date: 20080405
  Serious: Yes (Other)
  Sender: FDA-Public Use
  Company Number: 8028223

PATIENT
  Age: 52 Year
  Sex: Female

DRUGS (4)
  1. KEPPRA [Suspect]
     Indication: EPILEPSY
     Dosage: 500 MG 3/D PO
     Route: 048
  2. DEPAKENE [Suspect]
     Indication: EPILEPSY
     Dosage: 750 MG /D PO
     Route: 048
  3. URDANYL [Concomitant]
  4. TOPAMAX [Concomitant]

REACTIONS (2)
  - CONVULSION [None]
  - THROMBOCYTOPENIA [None]
